FAERS Safety Report 9695914 (Version 1)
Quarter: 2013Q4

REPORT INFORMATION
  Report Type: Spontaneous
  Country: US (occurrence: None)
  Receive Date: 20131118
  Receipt Date: 20131118
  Transmission Date: 20140711
  Serious: Yes (Life-Threatening)
  Sender: FDA-Public Use
  Company Number: None

PATIENT
  Age: 17 Year
  Sex: Female
  Weight: 58.97 kg

DRUGS (1)
  1. MONTELUKAST 10MG MYLAN [Suspect]
     Indication: ASTHMA
     Dosage: 1 PILL  ONCE DAILY  TAKEN BY MOUTH
     Route: 048

REACTIONS (4)
  - Chest discomfort [None]
  - Dyspnoea [None]
  - Drug ineffective [None]
  - Product substitution issue [None]
